FAERS Safety Report 18955914 (Version 2)
Quarter: 2025Q3

REPORT INFORMATION
  Report Type: Spontaneous
  Country: EU (occurrence: EU)
  Receive Date: 20210301
  Receipt Date: 20250813
  Transmission Date: 20251020
  Serious: Yes (Death, Other)
  Sender: BIOGEN
  Company Number: EU-BIOGEN-2021BI00980895

PATIENT
  Age: 15 Year
  Sex: Male

DRUGS (3)
  1. SPINRAZA [Suspect]
     Active Substance: NUSINERSEN
     Indication: Spinal muscular atrophy
     Route: 050
     Dates: start: 20181106, end: 20210105
  2. SYMBICORT [Concomitant]
     Active Substance: BUDESONIDE\FORMOTEROL FUMARATE DIHYDRATE
     Indication: Asthma
     Route: 050
     Dates: start: 20180112
  3. ALBUTEROL SULFATE [Concomitant]
     Active Substance: ALBUTEROL SULFATE
     Indication: Asthma
     Route: 050
     Dates: start: 2018

REACTIONS (2)
  - Sudden death [Fatal]
  - CSF white blood cell count increased [Unknown]

NARRATIVE: CASE EVENT DATE: 20210101
